FAERS Safety Report 9215426 (Version 1)
Quarter: 2013Q2

REPORT INFORMATION
  Report Type: Report from Study
  Country: MX (occurrence: MX)
  Receive Date: 20130405
  Receipt Date: 20130405
  Transmission Date: 20140414
  Serious: Yes (Hospitalization)
  Sender: FDA-Public Use
  Company Number: MX-AMGEN-US312561

PATIENT
  Age: 81 Year
  Sex: Male

DRUGS (2)
  1. DENOSUMAB [Suspect]
     Indication: PROSTATE CANCER
     Dosage: UNK BLINDED, QMO
     Route: 058
     Dates: start: 20080213
  2. CAPTOPRIL [Concomitant]
     Dosage: 25 MG, BID
     Route: 065

REACTIONS (1)
  - Haematuria [Recovered/Resolved]
